FAERS Safety Report 5572050-3 (Version None)
Quarter: 2007Q4

REPORT INFORMATION
  Report Type: 
  Country: None (occurrence: None)
  Receive Date: 20071219
  Receipt Date: 20071210
  Transmission Date: 20080405
  Serious: Yes (Hospitalization)
  Sender: FDA-Public Use
  Company Number: 2007S1013224

PATIENT
  Age: 89 Year
  Sex: Female
  Weight: 64 kg

DRUGS (16)
  1. AROMASIN [Suspect]
     Indication: BREAST CANCER
     Dosage: 25 MG; DIALY; ORAL
     Route: 048
     Dates: start: 20060809
  2. LIPITOR [Suspect]
  3. TOPROL-XL [Suspect]
  4. GEMFIBROZIL [Suspect]
  5. LISINOPRIL AND HYDROCHLOROTHIAZIDE [Suspect]
     Dosage: 10 MG; ORAL; 12.5 MG; ORAL
     Route: 048
  6. ASPIRIN /00002701/ (CON.) [Concomitant]
  7. CALCIUM (CON.) [Concomitant]
  8. NORVASC /00972401/ (CON.) [Concomitant]
  9. PLAVIX /01220701/ (CON.) [Concomitant]
  10. CHONDROITIN (CON.) [Concomitant]
  11. LEVOTHYROXINE (CON.) [Concomitant]
  12. LIDODERM (CON.) [Concomitant]
  13. MULTIVITAMINS (CON.) [Concomitant]
  14. OMEGA 3 (CON.) [Concomitant]
  15. SALICYLATES NOS (CON.) [Concomitant]
  16. ZETIA (CON.) [Concomitant]

REACTIONS (14)
  - ASTHENIA [None]
  - BASILAR ARTERY STENOSIS [None]
  - BLOOD CREATININE INCREASED [None]
  - BURSITIS [None]
  - CEREBRAL ARTERY STENOSIS [None]
  - CONFUSIONAL STATE [None]
  - DIZZINESS [None]
  - FATIGUE [None]
  - HYPOACUSIS [None]
  - NERVE ROOT COMPRESSION [None]
  - RENAL IMPAIRMENT [None]
  - SPINAL OSTEOARTHRITIS [None]
  - TRANSIENT ISCHAEMIC ATTACK [None]
  - VISION BLURRED [None]
